FAERS Safety Report 10273164 (Version 1)
Quarter: 2014Q2

REPORT INFORMATION
  Report Type: Spontaneous
  Country: CA (occurrence: None)
  Receive Date: 20140630
  Receipt Date: 20140630
  Transmission Date: 20141212
  Serious: Yes (Other)
  Sender: FDA-Public Use
  Company Number: AUR-APL-2014-06872

PATIENT
  Age: 66 Year
  Sex: Male

DRUGS (9)
  1. AURO-ATORVASTATIN 20MG TABLETS (ATORVASTATIN) TABLET, 20MG [Suspect]
     Indication: PRODUCT USED FOR UNKNOWN INDICATION
  2. CITALOPRAM TABLETS [Suspect]
     Indication: PRODUCT USED FOR UNKNOWN INDICATION
  3. QUETIAPINE [Suspect]
     Indication: PRODUCT USED FOR UNKNOWN INDICATION
  4. EZETROL (EZETIMIBE) [Suspect]
     Indication: PRODUCT USED FOR UNKNOWN INDICATION
  5. PMS-CLONAZEPAM (CLONAZEPAM) TABLET, 1.0MG [Suspect]
     Indication: PRODUCT USED FOR UNKNOWN INDICATION
  6. TRAZODONE (TRAZODONE) [Suspect]
     Indication: PRODUCT USED FOR UNKNOWN INDICATION
  7. WELLBUTRIN XL [Suspect]
     Indication: PRODUCT USED FOR UNKNOWN INDICATION
  8. NAPROXEN (NAPROXEN) [Concomitant]
  9. QUETIAPINE TEVA (QUETIAPINE FUMARATE) [Concomitant]

REACTIONS (8)
  - Balance disorder [None]
  - Bursitis [None]
  - Dizziness [None]
  - Fall [None]
  - Head discomfort [None]
  - Loss of consciousness [None]
  - Pain [None]
  - Pain in extremity [None]
